FAERS Safety Report 4414376-2 (Version None)
Quarter: 2004Q3

REPORT INFORMATION
  Report Type: 
  Country: None (occurrence: None)
  Receive Date: 20040701
  Receipt Date: 20040326
  Transmission Date: 20050211
  Serious: Yes (Life-Threatening, Hospitalization)
  Sender: FDA-Public Use
  Company Number: VISP-PR-0403S-0136(0)

PATIENT
  Age: 74 Year
  Sex: Male
  Weight: 99.7913 kg

DRUGS (3)
  1. VISIPAQUE [Suspect]
     Indication: DRUG USE FOR UNKNOWN INDICATION
     Dosage: 104 ML, SINGLE DOSE, I.A.
     Route: 014
     Dates: start: 20040225, end: 20040225
  2. DIPHENYDRAMINE HYDROCHLORIDE (BENADRYL) [Concomitant]
  3. METHYLPREDISOLONE SODIUM SUCCINATE (SOLU-MEDROL) [Concomitant]

REACTIONS (1)
  - ANAPHYLACTIC REACTION [None]
